FAERS Safety Report 10051252 (Version 2)
Quarter: 2014Q2

REPORT INFORMATION
  Report Type: Report from Study
  Country: US (occurrence: US)
  Receive Date: 20140401
  Receipt Date: 20140401
  Transmission Date: 20141212
  Serious: No
  Sender: FDA-Public Use
  Company Number: US-UCBSA-8009186

PATIENT
  Age: 0 None
  Sex: Male
  Weight: 3.7 kg

DRUGS (10)
  1. PRENATAL VITAMINS [Concomitant]
     Dosage: DOSE FREQ.: DAILY
     Route: 064
  2. ZOFRAN [Concomitant]
     Route: 064
  3. ACYCLOVIR 5 % [Concomitant]
     Indication: ORAL HERPES
     Route: 064
     Dates: start: 20040616, end: 20040623
  4. KEPPRA [Suspect]
     Dosage: DOSE FREQ.: DAILY
     Route: 064
     Dates: start: 20040518, end: 20050216
  5. TEGRETOL XR [Suspect]
     Indication: EPILEPSY
     Dosage: DOSE FREQ.: DAILY
     Route: 064
     Dates: end: 20050216
  6. FOLIC ACID [Concomitant]
     Dosage: DOSE FREQ.: DAILY
     Route: 064
     Dates: end: 20050216
  7. ALLEGRA [Concomitant]
     Dosage: DOSE FREQ.: DAILY
     Route: 064
     Dates: end: 20050216
  8. PHENERGAN [Concomitant]
     Route: 064
  9. REGLAN [Concomitant]
     Route: 064
  10. SCOPOLAMINE PATCH [Concomitant]
     Route: 064

REACTIONS (4)
  - Foetal exposure during pregnancy [Recovered/Resolved]
  - Tachycardia foetal [Recovered/Resolved]
  - Foetal heart rate abnormal [Recovered/Resolved]
  - Foetal hypokinesia [Recovered/Resolved]
